FAERS Safety Report 7823047-1 (Version None)
Quarter: 2011Q4

REPORT INFORMATION
  Report Type: 
  Country: None (occurrence: None)
  Receive Date: 20111018
  Receipt Date: 20110228
  Transmission Date: 20120403
  Serious: No
  Sender: FDA-Public Use
  Company Number: US-ASTRAZENECA-2011SE11597

PATIENT
  Age: 53 Year
  Sex: Male

DRUGS (1)
  1. SYMBICORT [Suspect]
     Dosage: 160/4.5 MCG 1 PUFF BID
     Route: 055

REACTIONS (5)
  - EXPOSURE TO CONTAMINATED AIR [None]
  - DYSPNOEA [None]
  - SINUSITIS [None]
  - EYE SWELLING [None]
  - ROAD TRAFFIC ACCIDENT [None]
